FAERS Safety Report 14047739 (Version 1)
Quarter: 2017Q4

REPORT INFORMATION
  Report Type: Spontaneous
  Country: US (occurrence: US)
  Receive Date: 20171005
  Receipt Date: 20171005
  Transmission Date: 20180321
  Serious: Yes (Death)
  Sender: FDA-Public Use
  Company Number: None

PATIENT
  Age: 18 Year
  Sex: Female
  Weight: 120 kg

DRUGS (1)
  1. BRENTUXIMAB [Suspect]
     Active Substance: BRENTUXIMAB VEDOTIN
     Indication: ANAPLASTIC LARGE-CELL LYMPHOMA
     Dosage: ?          OTHER FREQUENCY:ONCE;?
     Route: 040
     Dates: start: 20170714

REACTIONS (20)
  - Pyrexia [None]
  - Hepatic steatosis [None]
  - Cholelithiasis [None]
  - Abdominal pain [None]
  - Brain oedema [None]
  - Hepatic failure [None]
  - Coagulopathy [None]
  - Cholestasis [None]
  - Myalgia [None]
  - Necrosis [None]
  - Encephalopathy [None]
  - Multiple organ dysfunction syndrome [None]
  - Renal tubular necrosis [None]
  - Acute respiratory distress syndrome [None]
  - Acute kidney injury [None]
  - Mental status changes [None]
  - Encephalitis [None]
  - Renal failure [None]
  - Renal haemorrhage [None]
  - Splenomegaly [None]

NARRATIVE: CASE EVENT DATE: 20170714
